FAERS Safety Report 9670006 (Version 3)
Quarter: 2019Q4

REPORT INFORMATION
  Report Type: Spontaneous
  Country: US (occurrence: US)
  Receive Date: 20131105
  Receipt Date: 20191219
  Transmission Date: 20200122
  Serious: Yes (Hospitalization)
  Sender: FDA-Public Use
  Company Number: US-UCBSA-097195

PATIENT
  Age: 76 Year
  Sex: Female
  Weight: 62.27 kg

DRUGS (8)
  1. COZAAR [Concomitant]
     Active Substance: LOSARTAN POTASSIUM
     Dosage: 50 MG, ONCE DAILY (QD)
     Route: 048
  2. SALINE WITH POTASSIUM INTRAVENOUS [Concomitant]
     Dosage: UNKNOWN
  3. PREDNISONE. [Concomitant]
     Active Substance: PREDNISONE
     Indication: RHEUMATOID ARTHRITIS
     Dosage: 5 MG, ONCE DAILY (QD)
     Route: 048
     Dates: start: 201310
  4. LOVXYL [Concomitant]
  5. PRIMIDONE. [Concomitant]
     Active Substance: PRIMIDONE
  6. CIMZIA [Suspect]
     Active Substance: CERTOLIZUMAB PEGOL
     Indication: RHEUMATOID ARTHRITIS
     Dosage: 400 MG, MONTHLY (QM)
     Route: 058
     Dates: start: 20130724
  7. INSULIN 70/30 [Concomitant]
     Active Substance: INSULIN HUMAN
     Indication: DIABETES MELLITUS
     Dosage: NUMBER OF INTAKES: 2
     Route: 058
  8. TAMIFLU PO [Concomitant]
     Dosage: DOSE UNKNOWN
     Route: 048
     Dates: end: 201310

REACTIONS (3)
  - Skin laceration [Recovered/Resolved]
  - Fall [Recovered/Resolved]
  - Influenza [Recovered/Resolved]

NARRATIVE: CASE EVENT DATE: 20130929
